FAERS Safety Report 4210963 (Version 3)
Quarter: 2020Q1

REPORT INFORMATION
  Report Type: Spontaneous
  Country: DE (occurrence: DE)
  Receive Date: 20040917
  Receipt Date: 20200218
  Transmission Date: 20200409
  Serious: Yes (Hospitalization)
  Sender: FDA-Public Use
  Company Number: DE-ROCHE-379760

PATIENT
  Sex: Male

DRUGS (4)
  1. INSULIN [Concomitant]
     Active Substance: INSULIN NOS
     Route: 065
  2. ROFERON-A [Suspect]
     Active Substance: INTERFERON ALFA-2A
     Indication: CUTANEOUS T-CELL LYMPHOMA
     Dosage: DOSAGE REGIMEN: 12 MILLIONIU PER WEEK.
     Route: 065
  3. DIGITALIS [Concomitant]
     Active Substance: DIGITALIS
     Route: 065
  4. PSORALEN [Concomitant]
     Active Substance: PSORALEN
     Route: 065

REACTIONS (1)
  - Erythema multiforme [Not Recovered/Not Resolved]
